FAERS Safety Report 8739223 (Version 2)
Quarter: 2012Q4

REPORT INFORMATION
  Report Type: 
  Country: JP (occurrence: JP)
  Receive Date: 20120823
  Receipt Date: 20120910
  Transmission Date: 20130627
  Serious: Yes (Death, Life-Threatening)
  Sender: FDA-Public Use
  Company Number: JP-PFIZER INC-2012184428

PATIENT
  Age: 84 Year
  Sex: Male
  Weight: 42.2 kg

DRUGS (8)
  1. ZYVOX [Suspect]
     Indication: PNEUMONIA STAPHYLOCOCCAL
     Dosage: 600 mg, 2x/day
     Route: 041
     Dates: start: 20120717, end: 20120727
  2. FAMOTIDINE [Suspect]
     Indication: GASTRIC ULCER HAEMORRHAGE
     Dosage: 20 mg, 1x/day
     Route: 041
     Dates: start: 20120718, end: 20120730
  3. LASIX [Concomitant]
     Indication: CARDIAC FAILURE
     Dosage: 20 mg, 1x/day
     Route: 042
     Dates: start: 20120717
  4. BISOLVON [Concomitant]
     Indication: SPUTUM RETENTION
     Dosage: 8 mg, 1x/day
     Route: 042
     Dates: start: 20120717
  5. SOL-MELCORT [Concomitant]
     Dosage: UNK
     Route: 041
     Dates: start: 20120716, end: 20120729
  6. TEICOPLANIN [Concomitant]
     Indication: PNEUMONIA STAPHYLOCOCCAL
     Dosage: 400 mg, 1x/day
     Route: 041
     Dates: start: 20120705, end: 20120705
  7. TEICOPLANIN [Concomitant]
     Dosage: 200 mg, 1x/day
     Route: 041
     Dates: start: 20120706, end: 20120710
  8. TEICOPLANIN [Concomitant]
     Dosage: 400 mg, 1x/day
     Route: 041
     Dates: start: 20120711, end: 20120716

REACTIONS (2)
  - Disseminated intravascular coagulation [Fatal]
  - Platelet count decreased [Recovered/Resolved]
